FAERS Safety Report 5231038-2 (Version None)
Quarter: 2007Q1

REPORT INFORMATION
  Report Type: 
  Country: None (occurrence: None)
  Receive Date: 20070205
  Receipt Date: 20070205
  Transmission Date: 20070707
  Serious: Yes (Life-Threatening, Hospitalization)
  Sender: FDA-Public Use
  Company Number: None

PATIENT
  Age: 61 Year
  Sex: Male
  Weight: 92.7 kg

DRUGS (7)
  1. TERAZOSIN HCL [Suspect]
     Indication: BENIGN PROSTATIC HYPERPLASIA
     Dosage: 10MG PO AT BED
     Route: 048
     Dates: start: 20031101
  2. TRAZODONE HCL [Concomitant]
  3. SUMATRIPTAN SUCC 6MG/0.5ML STATDOSE RFL [Concomitant]
  4. ZOLMITRIPTAN [Concomitant]
  5. IBUPROFEN [Concomitant]
  6. SERTRALINE HCL [Concomitant]
  7. LOVASTATIN [Concomitant]

REACTIONS (2)
  - DIZZINESS [None]
  - HYPOTENSION [None]
